FAERS Safety Report 8675274 (Version 3)
Quarter: 2015Q2

REPORT INFORMATION
  Report Type: Spontaneous
  Country: US (occurrence: US)
  Receive Date: 20120720
  Receipt Date: 20150415
  Transmission Date: 20150821
  Serious: Yes (Other)
  Sender: FDA-Public Use
  Company Number: US-ASTRAZENECA-2012SE48790

PATIENT
  Age: 814 Month
  Sex: Female
  Weight: 77.1 kg

DRUGS (14)
  1. DEXILANT [Concomitant]
     Active Substance: DEXLANSOPRAZOLE
     Indication: GASTRIC DISORDER
  2. ASPIRIN. [Concomitant]
     Active Substance: ASPIRIN
  3. TYLENOL [Concomitant]
     Active Substance: ACETAMINOPHEN
  4. NEXIUM [Suspect]
     Active Substance: ESOMEPRAZOLE MAGNESIUM
     Route: 048
  5. NEXIUM [Suspect]
     Active Substance: ESOMEPRAZOLE MAGNESIUM
     Route: 048
  6. CRESTOR [Suspect]
     Active Substance: ROSUVASTATIN CALCIUM
     Indication: BLOOD CHOLESTEROL INCREASED
     Route: 048
  7. PRISTIQ EXTENDED RELEASE [Concomitant]
     Active Substance: DESVENLAFAXINE SUCCINATE
  8. GABAPENTIN. [Concomitant]
     Active Substance: GABAPENTIN
     Indication: NEUROPATHY PERIPHERAL
  9. LEXAPRO [Concomitant]
     Active Substance: ESCITALOPRAM OXALATE
     Dates: start: 2014
  10. VITAMINS [Concomitant]
     Active Substance: VITAMINS
  11. VITAMIN E [Concomitant]
     Active Substance: .ALPHA.-TOCOPHEROL
  12. BIOTIN [Concomitant]
     Active Substance: BIOTIN
  13. FISH OIL [Concomitant]
     Active Substance: FISH OIL
  14. XANAX [Concomitant]
     Active Substance: ALPRAZOLAM

REACTIONS (4)
  - Cerebrovascular accident [Unknown]
  - Drug ineffective [Unknown]
  - Flatulence [Unknown]
  - Drug dose omission [Not Recovered/Not Resolved]
